FAERS Safety Report 20572181 (Version 1)
Quarter: 2022Q1

REPORT INFORMATION
  Report Type: Spontaneous
  Country: US (occurrence: None)
  Receive Date: 20220309
  Receipt Date: 20220309
  Transmission Date: 20220423
  Serious: No
  Sender: FDA-Public Use
  Company Number: 2022A097182

PATIENT
  Age: 26185 Day
  Sex: Male
  Weight: 78 kg

DRUGS (1)
  1. EVUSHELD [Suspect]
     Active Substance: CILGAVIMAB\TIXAGEVIMAB
     Indication: Drug specific antibody
     Route: 030
     Dates: start: 20220105

REACTIONS (2)
  - Product administered at inappropriate site [Unknown]
  - Injection site pain [Unknown]

NARRATIVE: CASE EVENT DATE: 20220105
